FAERS Safety Report 9226037 (Version 1)
Quarter: 2013Q2

REPORT INFORMATION
  Report Type: Spontaneous
  Country: US (occurrence: US)
  Receive Date: 20130411
  Receipt Date: 20130411
  Transmission Date: 20140414
  Serious: No
  Sender: FDA-Public Use
  Company Number: US-ASTELLAS-2013US002271

PATIENT
  Age: 36 Year
  Sex: Female
  Weight: 55 kg

DRUGS (2)
  1. PROTOPIC [Suspect]
     Indication: SKIN DISORDER
     Dosage: UNK MG, UID/QD
     Route: 061
     Dates: start: 20130215, end: 20130215
  2. ORTHO CYCLEN [Concomitant]
     Indication: PROPHYLAXIS
     Dosage: UNK
     Route: 065

REACTIONS (3)
  - Off label use [Unknown]
  - Lymphadenopathy [Unknown]
  - Oral herpes [Unknown]
